FAERS Safety Report 5186525-2 (Version None)
Quarter: 2006Q4

REPORT INFORMATION
  Report Type: 
  Country: None (occurrence: None)
  Receive Date: 20061213
  Receipt Date: 20061130
  Transmission Date: 20070319
  Serious: Yes (Hospitalization)
  Sender: FDA-Public Use
  Company Number: SPV1-2006-01601

PATIENT
  Age: 31 Year
  Sex: Female

DRUGS (3)
  1. PENTASA [Suspect]
     Indication: COLITIS ULCERATIVE
     Dosage: 1000 MG 3XS DAILY, ORAL; 1000 MG 4XS, DAILY, ORAL
     Route: 048
     Dates: start: 20051111, end: 20060625
  2. PENTASA [Suspect]
     Indication: COLITIS ULCERATIVE
     Dosage: 1000 MG 3XS DAILY, ORAL; 1000 MG 4XS, DAILY, ORAL
     Route: 048
     Dates: start: 20060626, end: 20060919
  3. PROGRAF [Suspect]
     Dosage: 5 MG 2XS DAILY, ORAL
     Route: 048
     Dates: start: 20060713, end: 20060919

REACTIONS (1)
  - EOSINOPHILIC PNEUMONIA [None]
